FAERS Safety Report 10033292 (Version 1)
Quarter: 2014Q1

REPORT INFORMATION
  Report Type: Spontaneous
  Country: JP (occurrence: JP)
  Receive Date: 20140324
  Receipt Date: 20140324
  Transmission Date: 20141002
  Serious: Yes (Other)
  Sender: FDA-Public Use
  Company Number: JP-US-EMD SERONO, INC.-7275973

PATIENT
  Age: 41 Year
  Sex: Female

DRUGS (2)
  1. SEROPHENE [Suspect]
     Indication: OVULATION INDUCTION
     Route: 048
     Dates: start: 201206
  2. HMG                                /01277604/ [Concomitant]
     Indication: OVULATION INDUCTION
     Route: 065
     Dates: start: 201206

REACTIONS (2)
  - Ruptured ectopic pregnancy [Recovered/Resolved]
  - Abortion spontaneous [Unknown]
